FAERS Safety Report 5913295-X (Version None)
Quarter: 2008Q4

REPORT INFORMATION
  Report Type: 
  Country: None (occurrence: None)
  Receive Date: 20081009
  Receipt Date: 20080930
  Transmission Date: 20090506
  Serious: Yes (Hospitalization, Other)
  Sender: FDA-Public Use
  Company Number: JP-ASTRAZENECA-2008SE04308

PATIENT
  Age: 28901 Day
  Sex: Female
  Weight: 53 kg

DRUGS (2)
  1. KENZEN 16 MG [Suspect]
     Indication: HYPERTENSION
     Route: 048
     Dates: start: 20080716, end: 20080801
  2. ACETAMINOPHEN [Concomitant]
     Indication: DRUG USE FOR UNKNOWN INDICATION
     Route: 065

REACTIONS (1)
  - PANCREATITIS [None]
